FAERS Safety Report 9333752 (Version 1)
Quarter: 2013Q2

REPORT INFORMATION
  Report Type: Spontaneous
  Country: US (occurrence: US)
  Receive Date: 20130606
  Receipt Date: 20130606
  Transmission Date: 20140414
  Serious: No
  Sender: FDA-Public Use
  Company Number: US-AMGEN-USASP2012078982

PATIENT
  Age: 77 Year
  Sex: Female

DRUGS (2)
  1. PROLIA [Suspect]
     Indication: OSTEOPOROSIS
     Dosage: UNK
     Dates: start: 201205
  2. CALCIUM [Concomitant]
     Dosage: UNK

REACTIONS (3)
  - Influenza [Recovered/Resolved]
  - Oral mucosal blistering [Unknown]
  - Bone pain [Recovered/Resolved]
